FAERS Safety Report 8956917 (Version 2)
Quarter: 2012Q4

REPORT INFORMATION
  Report Type: 
  Country: US (occurrence: US)
  Receive Date: 20121210
  Receipt Date: 20121220
  Transmission Date: 20130627
  Serious: Yes (Hospitalization, Other)
  Sender: FDA-Public Use
  Company Number: US-GILEAD-2012-0065981

PATIENT
  Age: 82 Year
  Sex: Female

DRUGS (11)
  1. LETAIRIS [Suspect]
     Indication: PULMONARY HYPERTENSION
     Dosage: 10 mg, QD
     Route: 048
     Dates: start: 20120412
  2. LETAIRIS [Suspect]
     Indication: SCLERODERMA
  3. METOLAZONE [Concomitant]
  4. TORSEMIDE [Concomitant]
  5. PROCARDIA                          /00340701/ [Concomitant]
  6. VITAMIN D3 [Concomitant]
  7. REVATIO [Concomitant]
  8. RANEXA [Concomitant]
  9. PANTOPRAZOLE [Concomitant]
  10. LEVOTHYROXINE [Concomitant]
  11. LEXAPRO [Concomitant]

REACTIONS (2)
  - Pneumonia [Unknown]
  - Blood creatinine increased [Unknown]
